FAERS Safety Report 12065567 (Version 1)
Quarter: 2016Q1

REPORT INFORMATION
  Report Type: Spontaneous
  Country: US (occurrence: None)
  Receive Date: 20160210
  Receipt Date: 20160210
  Transmission Date: 20160526
  Serious: No
  Sender: FDA-Public Use
  Company Number: None

PATIENT
  Age: 50 Year
  Sex: Female

DRUGS (1)
  1. GLATOPA [Suspect]
     Active Substance: GLATIRAMER ACETATE
     Indication: MULTIPLE SCLEROSIS
     Route: 058
     Dates: start: 20150915

REACTIONS (5)
  - Pruritus [None]
  - Depression [None]
  - Anxiety [None]
  - Restlessness [None]
  - Feeling abnormal [None]

NARRATIVE: CASE EVENT DATE: 20151101
